FAERS Safety Report 17240676 (Version 1)
Quarter: 2020Q1

REPORT INFORMATION
  Report Type: Spontaneous
  Country: US (occurrence: US)
  Receive Date: 20200107
  Receipt Date: 20200107
  Transmission Date: 20200409
  Serious: No
  Sender: FDA-Public Use
  Company Number: US-TEVA-2020-US-1164877

PATIENT
  Sex: Female

DRUGS (1)
  1. LORAZEPAM TEVA [Suspect]
     Active Substance: LORAZEPAM
     Route: 065
     Dates: start: 201810

REACTIONS (3)
  - Nausea [Unknown]
  - Palpitations [Unknown]
  - Drug ineffective [Unknown]

NARRATIVE: CASE EVENT DATE: 2018
